FAERS Safety Report 5759324-8 (Version None)
Quarter: 2008Q2

REPORT INFORMATION
  Report Type: 
  Country: None (occurrence: None)
  Receive Date: 20080530
  Receipt Date: 20080520
  Transmission Date: 20081010
  Serious: Yes (Hospitalization)
  Sender: FDA-Public Use
  Company Number: GXKR2008DE04537

PATIENT
  Age: 69 Year
  Sex: Female

DRUGS (1)
  1. COTRIMHEXAL FORTE (NGX)(SULFAMETHOXAZOLE, TRIMETHOPRIM) TABLET [Suspect]
     Indication: URINARY TRACT INFECTION
     Dosage: 1 DF, BID, ORAL
     Route: 048

REACTIONS (7)
  - BURNING SENSATION MUCOSAL [None]
  - FEELING HOT [None]
  - HEADACHE [None]
  - MUCOSAL INFLAMMATION [None]
  - PHARYNGEAL INFLAMMATION [None]
  - SLEEP DISORDER [None]
  - VAGINAL INFLAMMATION [None]
